FAERS Safety Report 4892065-8 (Version None)
Quarter: 2006Q1

REPORT INFORMATION
  Report Type: 
  Country: None (occurrence: None)
  Receive Date: 20060123
  Receipt Date: 20051215
  Transmission Date: 20060701
  Serious: Yes (Other)
  Sender: FDA-Public Use
  Company Number: ES200512004008

PATIENT
  Age: 73 Year
  Sex: Female

DRUGS (2)
  1. GEMZAR [Suspect]
     Indication: NEOPLASM
     Dosage: 130 MG, INTRAVENOUS
     Route: 042
     Dates: start: 20051027, end: 20051027
  2. ELOXATIN /GFR/ (OXALIPLATIN) [Concomitant]

REACTIONS (1)
  - STRIDOR [None]
